FAERS Safety Report 24296329 (Version 4)
Quarter: 2024Q3

REPORT INFORMATION
  Report Type: Spontaneous
  Country: CN (occurrence: CN)
  Receive Date: 20240909
  Receipt Date: 20240920
  Transmission Date: 20241017
  Serious: Yes (Hospitalization, Other)
  Sender: SANOFI AVENTIS
  Company Number: CN-MLMSERVICE-20240828-PI173177-00218-1

PATIENT
  Age: 60 Year
  Sex: Female

DRUGS (9)
  1. LEFLUNOMIDE [Suspect]
     Active Substance: LEFLUNOMIDE
     Indication: Rheumatoid arthritis
     Dosage: UNK
     Dates: start: 201510
  2. METHYLPREDNISOLONE [Suspect]
     Active Substance: METHYLPREDNISOLONE
     Indication: Rheumatoid arthritis
     Dosage: UNK
     Dates: start: 201902
  3. METHYLPREDNISOLONE [Suspect]
     Active Substance: METHYLPREDNISOLONE
  4. METHOTREXATE [Suspect]
     Active Substance: METHOTREXATE
     Indication: Rheumatoid arthritis
     Dosage: UNK
     Dates: start: 201510
  5. METHOTREXATE [Suspect]
     Active Substance: METHOTREXATE
  6. IGURATIMOD [Suspect]
     Active Substance: IGURATIMOD
     Indication: Rheumatoid arthritis
     Dosage: UNK
     Dates: start: 2016
  7. IGURATIMOD [Suspect]
     Active Substance: IGURATIMOD
     Dates: start: 2016
  8. INFLIXIMAB [Suspect]
     Active Substance: INFLIXIMAB
     Indication: Rheumatoid arthritis
     Dosage: UNK
  9. INFLIXIMAB [Suspect]
     Active Substance: INFLIXIMAB
     Dates: start: 2016

REACTIONS (8)
  - Ureteric obstruction [Recovered/Resolved]
  - Hydronephrosis [Recovered/Resolved]
  - Micturition urgency [Recovered/Resolved]
  - Pollakiuria [Recovered/Resolved]
  - Ureteric dilatation [Recovered/Resolved]
  - Pelvic mass [Recovered/Resolved]
  - Uterine enlargement [Recovered/Resolved]
  - Actinomycosis [Recovered/Resolved]

NARRATIVE: CASE EVENT DATE: 20190201
